FAERS Safety Report 9457227 (Version 1)
Quarter: 2013Q3

REPORT INFORMATION
  Report Type: Report from Study
  Country: US (occurrence: US)
  Receive Date: 20130814
  Receipt Date: 20130814
  Transmission Date: 20140515
  Serious: Yes (Hospitalization)
  Sender: FDA-Public Use
  Company Number: US-BRISTOL-MYERS SQUIBB COMPANY-19176981

PATIENT
  Age: 61 Year
  Sex: Female
  Weight: 123 kg

DRUGS (32)
  1. IBUPROFEN [Suspect]
     Indication: RHEUMATOID ARTHRITIS
     Dosage: REG1
     Dates: start: 20110621, end: 20130321
  2. IBUPROFEN [Suspect]
     Indication: OSTEOARTHRITIS
     Dosage: REG1
     Dates: start: 20110621, end: 20130321
  3. NAPROXEN [Suspect]
     Indication: RHEUMATOID ARTHRITIS
     Dosage: REG1
     Dates: start: 20110621, end: 20130321
  4. NAPROXEN [Suspect]
     Indication: OSTEOARTHRITIS
     Dosage: REG1
     Dates: start: 20110621, end: 20130321
  5. BLINDED: CELECOXIB [Suspect]
     Indication: RHEUMATOID ARTHRITIS
     Dosage: REG1
     Dates: start: 20110621, end: 20130321
  6. BLINDED: CELECOXIB [Suspect]
     Indication: OSTEOARTHRITIS
     Dosage: REG1
     Dates: start: 20110621, end: 20130321
  7. BLINDED: PLACEBO [Suspect]
     Indication: RHEUMATOID ARTHRITIS
     Dosage: REG1
     Dates: start: 20110621, end: 20130321
  8. BLINDED: PLACEBO [Suspect]
     Indication: OSTEOARTHRITIS
     Dosage: REG1
     Dates: start: 20110621, end: 20130321
  9. METFORMIN HCL [Suspect]
     Indication: RHEUMATOID ARTHRITIS
     Dosage: REG1
     Route: 048
     Dates: start: 201102, end: 20130321
  10. METFORMIN HCL [Suspect]
     Indication: TYPE 2 DIABETES MELLITUS
     Dosage: REG1
     Route: 048
     Dates: start: 201102, end: 20130321
  11. TOPIRAMATE [Suspect]
     Indication: DIABETIC NEUROPATHY
     Dosage: REG1
     Route: 048
     Dates: start: 2000, end: 20130321
  12. CIPRO [Suspect]
     Indication: DYSURIA
     Dosage: REG1
     Route: 048
     Dates: start: 20130313, end: 20130319
  13. MACROBID [Suspect]
     Indication: URINARY TRACT INFECTION
     Dosage: 20-27MAR13-9D-100MG
     Route: 048
     Dates: start: 20130201, end: 20130209
  14. NEXIUM [Concomitant]
     Indication: GASTRIC ULCER
     Route: 048
  15. CALCITRIOL [Concomitant]
     Indication: VITAMIN D DEFICIENCY
     Route: 048
     Dates: start: 2009
  16. SPIRIVA [Concomitant]
     Indication: CHRONIC OBSTRUCTIVE PULMONARY DISEASE
     Route: 045
     Dates: start: 2005
  17. ADVAIR [Concomitant]
     Indication: ASTHMA
     Route: 045
     Dates: start: 2005
  18. FLUTICASONE [Concomitant]
     Indication: SEASONAL ALLERGY
     Route: 045
     Dates: start: 2009
  19. AMITRIPTYLINE [Concomitant]
     Indication: ANXIETY
     Route: 048
     Dates: start: 2010
  20. SINGULAIR [Concomitant]
     Indication: ASTHMA
     Route: 048
     Dates: start: 1991
  21. OXYBUTYNIN [Concomitant]
     Indication: URINARY INCONTINENCE
     Route: 048
     Dates: start: 2005
  22. TYLENOL EXTRA STRENGTH [Concomitant]
     Indication: ARTHRALGIA
     Route: 048
     Dates: start: 20110809
  23. FUROSEMIDE [Concomitant]
     Indication: JOINT SWELLING
     Route: 048
     Dates: start: 2000
  24. VITAMIN B12 [Concomitant]
     Indication: SUPPLEMENTATION THERAPY
     Route: 048
     Dates: start: 2004
  25. CALCIUM [Concomitant]
     Indication: SUPPLEMENTATION THERAPY
     Route: 048
     Dates: start: 2004
  26. IRON TABLETS [Concomitant]
     Indication: SUPPLEMENTATION THERAPY
     Route: 048
     Dates: start: 2004
  27. CRANBERRY [Concomitant]
     Indication: URINARY TRACT INFECTION
     Route: 048
     Dates: start: 2004
  28. VOLTAREN [Concomitant]
     Indication: ARTHRITIS
     Route: 061
     Dates: start: 20111008
  29. VENTOLIN [Concomitant]
     Indication: CHRONIC OBSTRUCTIVE PULMONARY DISEASE
     Route: 048
     Dates: start: 2009
  30. LEVOTHYROXINE [Concomitant]
     Indication: HYPOTHYROIDISM
     Dates: start: 20121127
  31. MULTIVITAMIN [Concomitant]
     Indication: SUPPLEMENTATION THERAPY
     Route: 048
     Dates: start: 2004
  32. FISH OIL [Concomitant]
     Indication: SUPPLEMENTATION THERAPY
     Route: 048
     Dates: start: 201104

REACTIONS (1)
  - Renal failure acute [Recovering/Resolving]
